FAERS Safety Report 8211565-6 (Version None)
Quarter: 2012Q1

REPORT INFORMATION
  Report Type: 
  Country: None (occurrence: None)
  Receive Date: 20120315
  Receipt Date: 20120308
  Transmission Date: 20120608
  Serious: Yes (Disabling)
  Sender: FDA-Public Use
  Company Number: US-BAYER-2012-024211

PATIENT
  Age: 75 Year
  Sex: Male
  Weight: 140 kg

DRUGS (3)
  1. CIPROFLOXACIN HYDROCHLORIDE [Suspect]
     Dosage: UNK
     Dates: start: 20070101
  2. PREDNISONE TAB [Suspect]
  3. DEGARELIX [Suspect]
     Indication: PROSTATE CANCER
     Dosage: 120MGX2 INJECTIONS
     Route: 058

REACTIONS (1)
  - DEAFNESS [None]
